FAERS Safety Report 6539704-3 (Version None)
Quarter: 2010Q1

REPORT INFORMATION
  Report Type: 
  Country: None (occurrence: None)
  Receive Date: 20100115
  Receipt Date: 20100107
  Transmission Date: 20100710
  Serious: Yes (Other)
  Sender: FDA-Public Use
  Company Number: US-SANOFI-AVENTIS-2010SA001712

PATIENT
  Sex: Female

DRUGS (2)
  1. LANTUS [Suspect]
     Indication: TYPE 2 DIABETES MELLITUS
     Dosage: DOSE:20 UNIT(S)
     Route: 058
  2. NOVOLOG [Suspect]

REACTIONS (4)
  - BLINDNESS [None]
  - GLAUCOMA [None]
  - HALLUCINATION, VISUAL [None]
  - RETINOPATHY [None]
